FAERS Safety Report 24837058 (Version 2)
Quarter: 2025Q1

REPORT INFORMATION
  Report Type: Spontaneous
  Country: NL (occurrence: NL)
  Receive Date: 20250113
  Receipt Date: 20250122
  Transmission Date: 20250408
  Serious: Yes (Hospitalization)
  Sender: AMGEN
  Company Number: NL-AMGEN-NLDSP2025002959

PATIENT
  Age: 63 Year
  Sex: Male

DRUGS (2)
  1. BEVACIZUMAB [Suspect]
     Active Substance: BEVACIZUMAB
     Indication: Metastases to lymph nodes
     Dosage: 1250 MILLIGRAM, Q3WK, ON 06/DEC/2024, THE PATIENT RECIEVED MOST RECENT DOSE OF BEVACIZUMAB.
     Route: 040
     Dates: start: 20240119
  2. ATEZOLIZUMAB [Suspect]
     Active Substance: ATEZOLIZUMAB
     Indication: Metastases to lymph nodes
     Dosage: 1200 MILLIGRAM, Q3WK, ON 06/DEC/2024, RECIEVED MOST RECENT DOSE OF ATEZOLIZUMAB
     Route: 040
     Dates: start: 20240119

REACTIONS (1)
  - Acute kidney injury [Recovered/Resolved]

NARRATIVE: CASE EVENT DATE: 20241227
